FAERS Safety Report 21655179 (Version 1)
Quarter: 2022Q4

REPORT INFORMATION
  Report Type: Report from Study
  Country: US (occurrence: US)
  Receive Date: 20221129
  Receipt Date: 20221129
  Transmission Date: 20230113
  Serious: No
  Sender: FDA-Public Use
  Company Number: US-ABBVIE-4184312

PATIENT
  Age: 37 Year
  Sex: Female

DRUGS (3)
  1. HUMIRA [Suspect]
     Active Substance: ADALIMUMAB
     Indication: Ankylosing spondylitis
     Dosage: CITRATE FREE?FORM STRENGTH: 40 MILLIGRAM
     Route: 058
  2. SUDAFED [Concomitant]
     Active Substance: PSEUDOEPHEDRINE HYDROCHLORIDE
     Indication: Complete decongestive therapy
     Dosage: 12 HOUR
  3. TYLENOL [Concomitant]
     Active Substance: ACETAMINOPHEN
     Indication: Complete decongestive therapy
     Dosage: 12 HOUR

REACTIONS (2)
  - Pharyngitis streptococcal [Unknown]
  - Viral infection [Unknown]

NARRATIVE: CASE EVENT DATE: 20221027
